FAERS Safety Report 8233778-X (Version None)
Quarter: 2012Q1

REPORT INFORMATION
  Report Type: 
  Country: None (occurrence: None)
  Receive Date: 20120326
  Receipt Date: 20120322
  Transmission Date: 20120608
  Serious: Yes (Death)
  Sender: FDA-Public Use
  Company Number: PHHY2012NL025311

PATIENT
  Sex: Female

DRUGS (3)
  1. ZOMETA [Suspect]
     Dosage: 4 MG/100 ML, 1X PER 28 DAYS
     Dates: start: 20120123, end: 20120123
  2. ZOMETA [Suspect]
     Indication: BREAST CANCER METASTATIC
     Dosage: 4 MG/100 ML, 1X PER 28 DAYS
     Dates: start: 20111201
  3. ZOMETA [Suspect]
     Dosage: 4 MG/100 ML, 1X PER 28 DAYS
     Dates: start: 20111228

REACTIONS (3)
  - NEOPLASM MALIGNANT [None]
  - TERMINAL STATE [None]
  - NEOPLASM PROGRESSION [None]
